FAERS Safety Report 5751004-8 (Version None)
Quarter: 2008Q2

REPORT INFORMATION
  Report Type: 
  Country: None (occurrence: None)
  Receive Date: 20080528
  Receipt Date: 20080526
  Transmission Date: 20081010
  Serious: Yes (Hospitalization)
  Sender: FDA-Public Use
  Company Number: FR-WYE-G01586108

PATIENT
  Sex: Female

DRUGS (1)
  1. RHINADVIL [Suspect]
     Dosage: 2 TABLETS IN ONE SINGLE DOSE
     Route: 048
     Dates: start: 20080503, end: 20080503

REACTIONS (1)
  - EYELID OEDEMA [None]
